FAERS Safety Report 6312851-7 (Version None)
Quarter: 2009Q3

REPORT INFORMATION
  Report Type: 
  Country: None (occurrence: None)
  Receive Date: 20090818
  Receipt Date: 20090811
  Transmission Date: 20100115
  Serious: Yes (Disabling, Other)
  Sender: FDA-Public Use
  Company Number: DE-JNJFOC-20090501775

PATIENT
  Age: 56 Year
  Sex: Female

DRUGS (4)
  1. TOPAMAX [Suspect]
     Route: 048
  2. TOPAMAX [Suspect]
     Indication: EPILEPSY
     Route: 048
  3. VALPROIC ACID [Concomitant]
     Route: 065
  4. VALPROIC ACID [Concomitant]
     Route: 065

REACTIONS (2)
  - GAIT DISTURBANCE [None]
  - MYOPATHY [None]
